FAERS Safety Report 5763838-4 (Version None)
Quarter: 2008Q2

REPORT INFORMATION
  Report Type: 
  Country: None (occurrence: None)
  Receive Date: 20080606
  Receipt Date: 20080606
  Transmission Date: 20081010
  Serious: Yes (Other)
  Sender: FDA-Public Use
  Company Number: None

PATIENT
  Sex: Male
  Weight: 86.02 kg

DRUGS (1)
  1. AMPHOTERICIN B [Suspect]
     Dosage: 0.5MG

REACTIONS (6)
  - DIZZINESS [None]
  - FEELING HOT [None]
  - HYPOXIA [None]
  - PARAESTHESIA [None]
  - SOMNOLENCE [None]
  - VOMITING [None]
